FAERS Safety Report 5780485-9 (Version None)
Quarter: 2008Q2

REPORT INFORMATION
  Report Type: 
  Country: None (occurrence: None)
  Receive Date: 20080620
  Receipt Date: 20080610
  Transmission Date: 20081010
  Serious: Yes (Hospitalization)
  Sender: FDA-Public Use
  Company Number: US-ELI_LILLY_AND_COMPANY-US200806002671

PATIENT
  Age: 66 Year
  Sex: Male

DRUGS (5)
  1. XIGRIS [Suspect]
     Indication: SEPSIS
     Dosage: 24 UNK, UNK
     Dates: start: 20080408, end: 20080412
  2. ZOSYN [Concomitant]
     Dates: start: 20080410, end: 20080421
  3. VANCOMYCIN HYDROCHLORIDE [Concomitant]
     Dates: start: 20080410, end: 20080421
  4. FLAGYL [Concomitant]
     Dates: start: 20080601
  5. LINEZOLID [Concomitant]
     Dates: start: 20080601

REACTIONS (1)
  - STAPHYLOCOCCAL SEPSIS [None]
